FAERS Safety Report 24738811 (Version 1)
Quarter: 2024Q4

REPORT INFORMATION
  Report Type: Spontaneous
  Country: BR (occurrence: BR)
  Receive Date: 20241216
  Receipt Date: 20241216
  Transmission Date: 20250115
  Serious: Yes (Other)
  Sender: BAXTER
  Company Number: BR-BAXTER-2024BAX029260

PATIENT
  Age: 25 Year
  Sex: Female
  Weight: 54 kg

DRUGS (2)
  1. IRON [Suspect]
     Active Substance: IRON
     Indication: Mineral supplementation
     Dosage: 2 AMPOULES OF SUCROFER DILUTED IN 250 ML OF 0.9% SALINE SOLUTION ADMINISTERED IN 1 HOUR
     Route: 042
     Dates: start: 20241204, end: 20241204
  2. SODIUM CHLORIDE [Suspect]
     Active Substance: SODIUM CHLORIDE
     Indication: Medication dilution
     Dosage: 250 ML OF 0.9% SALINE SOLUTION USED TO DILUTE 2 AMPOULES OF SUCROFER ADMINISTERED IN 1 HOUR
     Route: 042
     Dates: start: 20241204, end: 20241204

REACTIONS (8)
  - Skin plaque [Recovered/Resolved]
  - Malaise [Recovered/Resolved]
  - Nausea [Recovered/Resolved]
  - Abdominal pain upper [Recovered/Resolved]
  - Pallor [Recovered/Resolved]
  - Hypotension [Recovered/Resolved]
  - Pruritus [Recovered/Resolved]
  - Medication error [Unknown]

NARRATIVE: CASE EVENT DATE: 20241204
